FAERS Safety Report 7767120-5 (Version None)
Quarter: 2011Q3

REPORT INFORMATION
  Report Type: 
  Country: None (occurrence: None)
  Receive Date: 20110922
  Receipt Date: 20110426
  Transmission Date: 20111222
  Serious: No
  Sender: FDA-Public Use
  Company Number: US-ASTRAZENECA-2011SE24697

PATIENT
  Age: 44 Year
  Sex: Female

DRUGS (1)
  1. SEROQUEL XR [Suspect]
     Indication: BIPOLAR II DISORDER
     Route: 048
     Dates: start: 20110201, end: 20110401

REACTIONS (5)
  - MOOD SWINGS [None]
  - NIGHTMARE [None]
  - DRUG DOSE OMISSION [None]
  - CRYING [None]
  - NERVOUSNESS [None]
